FAERS Safety Report 4942658-4 (Version None)
Quarter: 2006Q1

REPORT INFORMATION
  Report Type: 
  Country: None (occurrence: None)
  Receive Date: 20060309
  Receipt Date: 20060224
  Transmission Date: 20060701
  Serious: Yes (Other)
  Sender: FDA-Public Use
  Company Number: 2006016120

PATIENT
  Age: 6 Year
  Sex: Female
  Weight: 14 kg

DRUGS (9)
  1. ZYVOX [Suspect]
     Indication: STAPHYLOCOCCAL INFECTION
     Dosage: INTRAVENOUS
     Route: 042
     Dates: end: 20060129
  2. ASPARTIC ACID (ASPARTIC ACID) [Concomitant]
  3. GLUTAMIC ACID (GLUTAMIC ACID) [Concomitant]
  4. CASPOFUNGIN (CASPOFUNGIN) [Concomitant]
  5. METHYLPREDNISOLONE [Concomitant]
  6. ENOXAPARIN SODIUM [Concomitant]
  7. VANCOMYCIN [Concomitant]
  8. CILASTATIN SODIUM W/IMIPENEM (CILASTATIN SODIUM, IMIPENEM) [Concomitant]
  9. AMIKACIN [Concomitant]

REACTIONS (4)
  - BLOOD PRESSURE INCREASED [None]
  - INFUSION RELATED REACTION [None]
  - TACHYCARDIA [None]
  - TACHYPNOEA [None]
